FAERS Safety Report 20389080 (Version 1)
Quarter: 2022Q1

REPORT INFORMATION
  Report Type: Spontaneous
  Country: US (occurrence: US)
  Receive Date: 20220128
  Receipt Date: 20220128
  Transmission Date: 20220423
  Serious: No
  Sender: FDA-Public Use
  Company Number: US-SANOFI-00937484

PATIENT
  Age: 78 Year
  Sex: Male

DRUGS (1)
  1. LANTUS SOLOSTAR [Suspect]
     Active Substance: INSULIN GLARGINE
     Indication: Type 2 diabetes mellitus
     Dosage: DRUG STRUCTURE DOSAGE : 38 UNITS DRUG INTERVAL DOSAGE : TWICE A DAY DRUG TREATMENT DURATION: ALL NEW

REACTIONS (2)
  - Wrong technique in product usage process [Unknown]
  - Product use issue [Unknown]
